FAERS Safety Report 20459809 (Version 3)
Quarter: 2022Q1

REPORT INFORMATION
  Report Type: Report from Study
  Country: DE (occurrence: None)
  Receive Date: 20220211
  Receipt Date: 20220309
  Transmission Date: 20220423
  Serious: Yes (Hospitalization)
  Sender: FDA-Public Use
  Company Number: DE-ROCHE-3013077

PATIENT
  Age: 74 Year
  Sex: Female
  Weight: 51 kg

DRUGS (16)
  1. ATEZOLIZUMAB [Suspect]
     Active Substance: ATEZOLIZUMAB
     Indication: Non-small cell lung cancer
     Dosage: START DATE OF MOST RECENT DOSE OF STUDY DRUG PRIOR TO AE 16-FEB-2021
     Route: 041
     Dates: start: 20201215
  2. ATEZOLIZUMAB [Suspect]
     Active Substance: ATEZOLIZUMAB
     Indication: Non-small cell lung cancer
     Dosage: DOSE LAST STUDY DRUG ADMIN PRIOR AE IS 1200 MG?START DATE OF MOST RECENT DOSE OF STUDY DRUG PRIOR TO
     Route: 041
     Dates: start: 20210419
  3. CARBOPLATIN [Suspect]
     Active Substance: CARBOPLATIN
     Indication: Non-small cell lung cancer
     Dosage: DOSE LAST STUDY DRUG ADMIN PRIOR AE 420 MG?START DATE OF MOST RECENT DOSE OF STUDY DRUG PRIOR TO AE1
     Route: 042
     Dates: start: 20201215
  4. PEMETREXED [Suspect]
     Active Substance: PEMETREXED
     Indication: Non-small cell lung cancer
     Dosage: DOSE LAST STUDY DRUG ADMIN PRIOR AE 753.77 MG?START DATE OF MOST RECENT DOSE OF STUDY DRUG PRIOR TO
     Route: 042
     Dates: start: 20201215
  5. BISOPROLOL [Concomitant]
     Active Substance: BISOPROLOL
     Indication: Hypertension
     Dosage: ONGOING YES?GIVEN FOR PROPHYLAXIS NO
     Dates: start: 202006
  6. TORSEMIDE [Concomitant]
     Active Substance: TORSEMIDE
     Indication: Hypertension
     Dosage: ONGOING YES?GIVEN FOR PROPHYLAXIS NO
     Dates: start: 202006
  7. PANTOPRAZOLE [Concomitant]
     Active Substance: PANTOPRAZOLE
     Indication: Gastric ulcer
     Dosage: ONGOING YES?GIVEN FOR PROPHYLAXIS YES
     Dates: start: 202006
  8. IBUPROFEN [Concomitant]
     Active Substance: IBUPROFEN
     Indication: Rheumatic disorder
     Dosage: ONGOING YES?GIVEN FOR PROPHYLAXIS NO
     Dates: start: 202006
  9. ZOPICLONE [Concomitant]
     Active Substance: ZOPICLONE
     Indication: Insomnia
     Dosage: ONGOING YES?GIVEN FOR PROPHYLAXIS YES
     Dates: start: 20201201
  10. POLYETHYLENE GLYCOLS [Concomitant]
     Active Substance: POLYETHYLENE GLYCOLS
     Indication: Constipation
     Dosage: ONGOING YES?GIVEN FOR PROPHYLAXIS NO
     Dates: start: 20210407
  11. POTASSIUM [Concomitant]
     Active Substance: POTASSIUM
     Indication: Hypokalaemia
     Dosage: ONGOING YES?GIVEN FOR PROPHYLAXIS NO
     Dates: start: 20210714
  12. PREDNISOLONE [Concomitant]
     Active Substance: PREDNISOLONE
     Indication: Rheumatic disorder
     Dosage: ONGOING YES?GIVEN FOR PROPHYLAXIS NO
     Route: 048
     Dates: start: 20210804
  13. PREDNISOLONE [Concomitant]
     Active Substance: PREDNISOLONE
     Indication: Rheumatoid arthritis
  14. METHIMAZOLE [Concomitant]
     Active Substance: METHIMAZOLE
     Indication: Hyperthyroidism
     Dosage: ONGOING YES?GIVEN FOR PROPHYLAXIS NO
     Dates: start: 20210804, end: 20220126
  15. ARNICA MONTANA FLOWER [Concomitant]
     Active Substance: ARNICA MONTANA FLOWER
     Indication: Polyneuropathy
     Dosage: ONGOING YES?GIVEN FOR PROPHYLAXIS NO
     Dates: start: 20211229
  16. PREGABALIN [Concomitant]
     Active Substance: PREGABALIN
     Indication: Polyneuropathy
     Dosage: ONGOING YES?GIVEN FOR PROPHYLAXIS NO
     Dates: start: 20220119

REACTIONS (1)
  - Hemiparesis [Not Recovered/Not Resolved]

NARRATIVE: CASE EVENT DATE: 20220125
